FAERS Safety Report 7789114-6 (Version None)
Quarter: 2011Q3

REPORT INFORMATION
  Report Type: 
  Country: None (occurrence: None)
  Receive Date: 20110930
  Receipt Date: 20110919
  Transmission Date: 20111222
  Serious: Yes (Disabling, Other)
  Sender: FDA-Public Use
  Company Number: CA-JNJFOC-20110909210

PATIENT
  Sex: Male
  Weight: 98.5 kg

DRUGS (4)
  1. DESLORATADINE [Concomitant]
     Indication: PREMEDICATION
     Route: 065
  2. REMICADE [Suspect]
     Indication: PSORIATIC ARTHROPATHY
     Route: 042
  3. SOLU-CORTEF [Concomitant]
     Indication: PREMEDICATION
     Route: 042
  4. TYLENOL-500 [Concomitant]
     Indication: PREMEDICATION
     Route: 065

REACTIONS (3)
  - IMMOBILE [None]
  - ASTHENIA [None]
  - PAIN [None]
